FAERS Safety Report 10552652 (Version 2)
Quarter: 2014Q4

REPORT INFORMATION
  Report Type: Report from Study
  Country: US (occurrence: US)
  Receive Date: 20141029
  Receipt Date: 20141029
  Transmission Date: 20150529
  Serious: Yes (Life-Threatening)
  Sender: FDA-Public Use
  Company Number: US-GLAXOSMITHKLINE-A1062557A

PATIENT
  Age: 39 Year
  Sex: Female

DRUGS (2)
  1. ATG [Suspect]
     Active Substance: LAPINE T-LYMPHOCYTE IMMUNE GLOBULIN
     Indication: APLASTIC ANAEMIA
     Dates: start: 20120827, end: 20121127
  2. ELTROMBOPAG [Suspect]
     Active Substance: ELTROMBOPAG
     Indication: APLASTIC ANAEMIA
     Dates: start: 20120911, end: 20121127

REACTIONS (2)
  - Self-injurious ideation [Unknown]
  - Depression [Unknown]

NARRATIVE: CASE EVENT DATE: 20121127
